FAERS Safety Report 4848509-0 (Version None)
Quarter: 2005Q4

REPORT INFORMATION
  Report Type: 
  Country: None (occurrence: None)
  Receive Date: 20051115
  Receipt Date: 20050902
  Transmission Date: 20060501
  Serious: No
  Sender: FDA-Public Use
  Company Number: S05-USA-04220-01

PATIENT
  Age: 73 Year
  Sex: Female

DRUGS (8)
  1. NAMENDA [Suspect]
     Indication: AMNESIA
     Dosage: 5 MG QD PO
     Route: 048
     Dates: start: 20050901, end: 20050901
  2. TOPROL (METOPROLOL) [Concomitant]
  3. ACIPHEX [Concomitant]
  4. DETROL [Concomitant]
  5. CELEXA [Concomitant]
  6. SYNTHROID [Concomitant]
  7. ASPIRIN [Concomitant]
  8. WATER PILL (NOS) [Concomitant]

REACTIONS (2)
  - HEADACHE [None]
  - HYPOAESTHESIA ORAL [None]
